FAERS Safety Report 5301169-7 (Version None)
Quarter: 2007Q2

REPORT INFORMATION
  Report Type: 
  Country: None (occurrence: None)
  Receive Date: 20070411
  Receipt Date: 20070328
  Transmission Date: 20071010
  Serious: Yes (Other)
  Sender: FDA-Public Use
  Company Number: 235433

PATIENT
  Age: 43 Year
  Sex: Male
  Weight: 91.5 kg

DRUGS (3)
  1. XOLAIR [Suspect]
     Indication: ASTHMA
     Dosage: 300 MG, SUBCUTANEOUS
     Route: 058
     Dates: start: 20050930
  2. ADVAIR DISKUS 100/50 [Concomitant]
  3. SALBUTAMOL (ALBUTEROL/ALBUTEROL SULFATE) [Concomitant]

REACTIONS (10)
  - AGEUSIA [None]
  - ANOSMIA [None]
  - CHEST DISCOMFORT [None]
  - COUGH [None]
  - DERMATITIS CONTACT [None]
  - HAEMOPTYSIS [None]
  - MULTIPLE ALLERGIES [None]
  - PULMONARY CONGESTION [None]
  - RASH GENERALISED [None]
  - WHEEZING [None]
